FAERS Safety Report 18568717 (Version 3)
Quarter: 2025Q2

REPORT INFORMATION
  Report Type: Report from Study
  Country: US (occurrence: US)
  Receive Date: 20201202
  Receipt Date: 20250522
  Transmission Date: 20250716
  Serious: Yes (Other)
  Sender: TAKEDA
  Company Number: US-TAKEDA-2020TUS051927

PATIENT
  Sex: Male
  Weight: 95 kg

DRUGS (14)
  1. HUMAN IMMUNOGLOBULIN G [Suspect]
     Active Substance: HUMAN IMMUNOGLOBULIN G
     Indication: Myasthenic syndrome
     Dosage: 80 GRAM, Q4WEEKS
     Dates: start: 20060922
  2. HUMAN IMMUNOGLOBULIN G [Suspect]
     Active Substance: HUMAN IMMUNOGLOBULIN G
  3. HUMAN IMMUNOGLOBULIN G [Suspect]
     Active Substance: HUMAN IMMUNOGLOBULIN G
     Dosage: 80 GRAM, Q4WEEKS
     Dates: start: 20140201
  4. ACETAMINOPHEN [Concomitant]
     Active Substance: ACETAMINOPHEN
  5. DIPHENHYDRAMINE HYDROCHLORIDE [Concomitant]
     Active Substance: DIPHENHYDRAMINE HYDROCHLORIDE
  6. IBUPROFEN [Concomitant]
     Active Substance: IBUPROFEN
  7. SODIUM CHLORIDE [Concomitant]
     Active Substance: SODIUM CHLORIDE
  8. CLARITIN [Concomitant]
     Active Substance: LORATADINE
  9. EPINEPHRINE [Concomitant]
     Active Substance: EPINEPHRINE
  10. AMBIEN [Concomitant]
     Active Substance: ZOLPIDEM TARTRATE
  11. FIRDAPSE [Concomitant]
     Active Substance: AMIFAMPRIDINE PHOSPHATE
  12. SODIUM CHLORIDE [Concomitant]
     Active Substance: SODIUM CHLORIDE
  13. AMOXICILLIN [Concomitant]
     Active Substance: AMOXICILLIN
  14. LEVOTHYROXINE SODIUM [Concomitant]
     Active Substance: LEVOTHYROXINE SODIUM

REACTIONS (17)
  - Lower limb fracture [Unknown]
  - Infusion related reaction [Unknown]
  - Leukoplakia [Unknown]
  - Eye irritation [Unknown]
  - Ocular discomfort [Unknown]
  - Dry eye [Unknown]
  - Stress [Unknown]
  - Fall [Unknown]
  - Product use issue [Unknown]
  - Gait disturbance [Unknown]
  - Insurance issue [Unknown]
  - Heart rate increased [Unknown]
  - Contusion [Unknown]
  - Blood pressure increased [Unknown]
  - Hypertension [Unknown]
  - Arthralgia [Unknown]
  - Back pain [Unknown]
